FAERS Safety Report 6442282-0 (Version None)
Quarter: 2009Q4

REPORT INFORMATION
  Report Type: 
  Country: None (occurrence: None)
  Receive Date: 20091116
  Receipt Date: 20091105
  Transmission Date: 20100525
  Serious: Yes (Other)
  Sender: FDA-Public Use
  Company Number: TR-WATSON-2009-08550

PATIENT
  Age: 29 Year
  Sex: Male

DRUGS (1)
  1. OXYTROL [Suspect]
     Indication: DRUG ABUSE
     Dosage: UNK

REACTIONS (1)
  - DRUG DEPENDENCE [None]
